FAERS Safety Report 7926835-6 (Version None)
Quarter: 2011Q4

REPORT INFORMATION
  Report Type: 
  Country: None (occurrence: None)
  Receive Date: 20111118
  Receipt Date: 20110415
  Transmission Date: 20120403
  Serious: Yes (Other)
  Sender: FDA-Public Use
  Company Number: US-PFIZER INC-2011282107

PATIENT
  Age: 85 Year
  Sex: Female

DRUGS (1)
  1. PROTONIX [Suspect]

REACTIONS (2)
  - HALLUCINATION [None]
  - DEMENTIA [None]
